FAERS Safety Report 25188846 (Version 1)
Quarter: 2025Q2

REPORT INFORMATION
  Report Type: Other
  Country: AU (occurrence: US)
  Receive Date: 20250411
  Receipt Date: 20250411
  Transmission Date: 20250716
  Serious: Yes (Other)
  Sender: LUPIN
  Company Number: None

PATIENT
  Age: 10 Year

DRUGS (1)
  1. CEPHALEXIN [Suspect]
     Active Substance: CEPHALEXIN
     Indication: Product used for unknown indication
     Route: 065

REACTIONS (8)
  - Respiratory depression [Unknown]
  - Anaphylactic reaction [Unknown]
  - Abdominal pain [Unknown]
  - Dyspnoea [Unknown]
  - Lip swelling [Unknown]
  - Paraesthesia oral [Unknown]
  - Rash [Unknown]
  - Swelling face [Unknown]
